FAERS Safety Report 5175792-7 (Version None)
Quarter: 2006Q4

REPORT INFORMATION
  Report Type: 
  Country: None (occurrence: None)
  Receive Date: 20061215
  Receipt Date: 20061201
  Transmission Date: 20070319
  Serious: Yes (Disabling)
  Sender: FDA-Public Use
  Company Number: PHBS2006CH18591

PATIENT
  Age: 62 Year
  Sex: Female

DRUGS (3)
  1. ZOMETA [Suspect]
     Indication: METASTASES TO BONE
     Dosage: 4 MG, IV MONTHLY
     Route: 042
     Dates: start: 20030101
  2. FASLODEX [Concomitant]
     Indication: BREAST CANCER STAGE IV
     Dosage: 50 MG, UNK
     Route: 030
     Dates: start: 20030527, end: 20040402
  3. XELODA [Concomitant]
     Indication: BREAST CANCER STAGE IV
     Dates: start: 20040501, end: 20050801

REACTIONS (2)
  - BONE DISORDER [None]
  - OSTEONECROSIS [None]
